FAERS Safety Report 13088892 (Version 1)
Quarter: 2016Q4

REPORT INFORMATION
  Report Type: Spontaneous
  Country: US (occurrence: US)
  Receive Date: 20161231
  Receipt Date: 20161231
  Transmission Date: 20170207
  Serious: Yes (Other)
  Sender: FDA-Public Use
  Company Number: None

PATIENT
  Age: 51 Year
  Sex: Female
  Weight: 84.1 kg

DRUGS (2)
  1. BUPROPION XL [Suspect]
     Active Substance: BUPROPION
     Indication: ANXIETY
     Dosage: ?          QUANTITY:1 TABLET(S);?
     Route: 048
     Dates: start: 20160625, end: 20161231
  2. BUPROPION XL [Suspect]
     Active Substance: BUPROPION
     Indication: DEPRESSION
     Dosage: ?          QUANTITY:1 TABLET(S);?
     Route: 048
     Dates: start: 20160625, end: 20161231

REACTIONS (5)
  - Hyperhidrosis [None]
  - Night sweats [None]
  - Rash [None]
  - Anxiety [None]
  - Depression [None]

NARRATIVE: CASE EVENT DATE: 20161201
